FAERS Safety Report 7875815-8 (Version None)
Quarter: 2011Q4

REPORT INFORMATION
  Report Type: 
  Country: None (occurrence: None)
  Receive Date: 20111031
  Receipt Date: 20111017
  Transmission Date: 20120403
  Serious: Yes (Other)
  Sender: FDA-Public Use
  Company Number: PHHY2011AR92167

PATIENT
  Sex: Male

DRUGS (5)
  1. ENALAPRIL [Concomitant]
  2. ONBREZ [Suspect]
     Indication: EMPHYSEMA
     Dosage: 1 DF, QD
  3. DILTIAZEM HCL [Concomitant]
     Indication: HYPERTENSION
  4. SPIRIVA [Suspect]
     Dosage: 18 UG, QD
  5. THEOPHYLLINE [Concomitant]

REACTIONS (7)
  - SINUSITIS [None]
  - MIDDLE INSOMNIA [None]
  - PALPITATIONS [None]
  - RHINITIS [None]
  - DYSPNOEA [None]
  - JOINT SWELLING [None]
  - FATIGUE [None]
